FAERS Safety Report 5199246-7 (Version None)
Quarter: 2007Q1

REPORT INFORMATION
  Report Type: 
  Country: None (occurrence: None)
  Receive Date: 20070104
  Receipt Date: 20061228
  Transmission Date: 20070707
  Serious: Yes (Other)
  Sender: FDA-Public Use
  Company Number: SE-PFIZER INC-2006156021

PATIENT
  Age: 84 Year
  Sex: Female

DRUGS (1)
  1. CYCLOKAPRON (IV) [Suspect]
     Indication: HAEMOPTYSIS
     Route: 048
     Dates: start: 20060223, end: 20060224

REACTIONS (2)
  - ANGIOEDEMA [None]
  - PRURITUS [None]
